FAERS Safety Report 8780238 (Version 1)
Quarter: 2012Q4

REPORT INFORMATION
  Report Type: Spontaneous
  Country: US (occurrence: None)
  Receive Date: 20120904
  Receipt Date: 20120904
  Transmission Date: 20130627
  Serious: Yes (Disabling, Other)
  Sender: FDA-Public Use
  Company Number: None

PATIENT
  Age: 72 Year
  Sex: Female
  Weight: 49.9 kg

DRUGS (1)
  1. COLGATE OPTIC WHITE COOL MILD MINT [Suspect]

REACTIONS (2)
  - Gingival inflammation [None]
  - Loose tooth [None]
